FAERS Safety Report 9594773 (Version 5)
Quarter: 2014Q3

REPORT INFORMATION
  Report Type: Spontaneous
  Country: FR (occurrence: FR)
  Receive Date: 20131004
  Receipt Date: 20140804
  Transmission Date: 20150326
  Serious: Yes (Hospitalization)
  Sender: FDA-Public Use
  Company Number: FR-SA-2013SA097707

PATIENT
  Age: 44 Year
  Sex: Female

DRUGS (7)
  1. VANCOMYCIN [Suspect]
     Active Substance: VANCOMYCIN
     Indication: PRODUCT USED FOR UNKNOWN INDICATION
     Route: 065
     Dates: start: 20130404, end: 20130426
  2. ROCEPHINE [Suspect]
     Active Substance: CEFTRIAXONE SODIUM
     Indication: PRODUCT USED FOR UNKNOWN INDICATION
     Route: 065
     Dates: start: 20130328, end: 20130404
  3. ROCEPHINE [Suspect]
     Active Substance: CEFTRIAXONE SODIUM
     Indication: PRODUCT USED FOR UNKNOWN INDICATION
     Route: 065
     Dates: start: 20131112
  4. OMNIPAQUE [Suspect]
     Active Substance: IOHEXOL
     Indication: PRODUCT USED FOR UNKNOWN INDICATION
     Route: 042
     Dates: start: 20130405, end: 20130405
  5. FLAGYL [Suspect]
     Active Substance: METRONIDAZOLE\METRONIDAZOLE HYDROCHLORIDE
     Indication: PRODUCT USED FOR UNKNOWN INDICATION
     Route: 065
     Dates: start: 20130328, end: 20130404
  6. RIFAMPICIN [Suspect]
     Active Substance: RIFAMPIN
     Indication: PRODUCT USED FOR UNKNOWN INDICATION
     Route: 065
     Dates: start: 20130412, end: 20130426
  7. ROCEPHINE [Suspect]
     Active Substance: CEFTRIAXONE SODIUM
     Indication: PRODUCT USED FOR UNKNOWN INDICATION
     Dosage: THIRD DOSE
     Route: 065
     Dates: start: 20131105

REACTIONS (11)
  - Pyrexia [Recovered/Resolved]
  - Rash pustular [Recovered/Resolved]
  - Drug reaction with eosinophilia and systemic symptoms [Recovered/Resolved]
  - Skin lesion [Recovered/Resolved]
  - Erythema [Recovered/Resolved]
  - Burning sensation [Recovered/Resolved]
  - Eyelid oedema [Recovered/Resolved]
  - Vulvovaginal erythema [Recovered/Resolved]
  - Skin exfoliation [Recovered/Resolved]
  - Rash maculo-papular [Recovered/Resolved]
  - Histiocytosis haematophagic [Recovered/Resolved]

NARRATIVE: CASE EVENT DATE: 20130422
